FAERS Safety Report 7601301-6 (Version None)
Quarter: 2011Q3

REPORT INFORMATION
  Report Type: 
  Country: None (occurrence: None)
  Receive Date: 20110711
  Receipt Date: 20110707
  Transmission Date: 20111222
  Serious: Yes (Life-Threatening, Hospitalization)
  Sender: FDA-Public Use
  Company Number: GR-JNJFOC-20110703009

PATIENT
  Sex: Male

DRUGS (2)
  1. CYCLOPHOSPHAMIDE [Suspect]
     Indication: MULTIPLE MYELOMA
     Route: 042
  2. DOXORUBICIN HCL [Suspect]
     Indication: MULTIPLE MYELOMA
     Route: 042

REACTIONS (3)
  - LARYNGEAL OEDEMA [None]
  - ANAPHYLACTIC REACTION [None]
  - OBSTRUCTIVE AIRWAYS DISORDER [None]
